FAERS Safety Report 25853730 (Version 1)
Quarter: 2025Q3

REPORT INFORMATION
  Report Type: Report from Study
  Country: CA (occurrence: CA)
  Receive Date: 20250926
  Receipt Date: 20250926
  Transmission Date: 20251021
  Serious: Yes (Hospitalization)
  Sender: TAIHO ONCOLOGY INC
  Company Number: CA-TAIHOP-2025-006930

PATIENT
  Age: 75 Year
  Sex: Male

DRUGS (2)
  1. LONSURF [Suspect]
     Active Substance: TIPIRACIL HYDROCHLORIDE\TRIFLURIDINE
     Indication: Colorectal cancer metastatic
     Dosage: CYCLE AND FORM STRENGTH UNKNOWN
     Route: 048
     Dates: start: 20250508
  2. LONSURF [Suspect]
     Active Substance: TIPIRACIL HYDROCHLORIDE\TRIFLURIDINE
     Dosage: CYCLE AND FORM STRENGTH UNKNOWN
     Route: 048

REACTIONS (3)
  - Urinary tract infection [Unknown]
  - Haematuria [Unknown]
  - Headache [Unknown]

NARRATIVE: CASE EVENT DATE: 20250626
